FAERS Safety Report 4678345-X (Version None)
Quarter: 2005Q2

REPORT INFORMATION
  Report Type: 
  Country: None (occurrence: None)
  Receive Date: 20050601
  Receipt Date: 20050523
  Transmission Date: 20051028
  Serious: Yes (Other)
  Sender: FDA-Public Use
  Company Number: PHBS2005BE07524

PATIENT
  Age: 64 Year
  Sex: Male

DRUGS (2)
  1. ZOMETA [Suspect]
     Indication: PRIMARY AMYLOIDOSIS
     Route: 065
     Dates: end: 20041201
  2. AREDIA [Suspect]
     Indication: PRIMARY AMYLOIDOSIS
     Route: 065

REACTIONS (11)
  - ASEPTIC NECROSIS BONE [None]
  - EXCESSIVE GRANULATION TISSUE [None]
  - MUCOUS MEMBRANE DISORDER [None]
  - ORAL MUCOSAL DISORDER [None]
  - OSTEOMYELITIS [None]
  - OSTEONECROSIS [None]
  - PRIMARY SEQUESTRUM [None]
  - SWELLING [None]
  - TOOTH EXTRACTION [None]
  - TOOTH INFECTION [None]
  - WOUND DEBRIDEMENT [None]
